FAERS Safety Report 10399013 (Version 1)
Quarter: 2014Q3

REPORT INFORMATION
  Report Type: Spontaneous
  Country: US (occurrence: US)
  Receive Date: 20140821
  Receipt Date: 20140821
  Transmission Date: 20150326
  Serious: Yes (Hospitalization, Other)
  Sender: FDA-Public Use
  Company Number: US-MALLINCKRODT-T201403089

PATIENT
  Age: 7 Year
  Sex: Male

DRUGS (6)
  1. SODIUM IODIDE I 131 [Suspect]
     Active Substance: SODIUM IODIDE I-131
     Indication: BASEDOW^S DISEASE
     Dosage: 7 MCI, UNK
     Route: 065
  2. PROPRANOLOL [Concomitant]
     Active Substance: PROPRANOLOL\PROPRANOLOL HYDROCHLORIDE
     Dosage: 3.3 MG/ KG / DAY
  3. SODIUM IODIDE I 131 [Suspect]
     Active Substance: SODIUM IODIDE I-131
     Dosage: 12.7 MCI, UNK
     Route: 065
  4. SODIUM IODIDE I 131 [Suspect]
     Active Substance: SODIUM IODIDE I-131
     Dosage: 20.2 MCI, UNK
     Route: 065
  5. METHIMAZOLE. [Suspect]
     Active Substance: METHIMAZOLE
     Indication: HYPERTHYROIDISM
     Dosage: 50 MG / DAY
     Route: 065
  6. LEVOTHYROXINE [Concomitant]
     Active Substance: LEVOTHYROXINE
     Indication: HYPERTHYROIDISM

REACTIONS (4)
  - Encephalopathy [Recovered/Resolved]
  - Treatment failure [Recovered/Resolved]
  - Thyrotoxic crisis [Recovered/Resolved]
  - Off label use [Unknown]
